FAERS Safety Report 9467572 (Version 1)
Quarter: 2013Q3

REPORT INFORMATION
  Report Type: Report from Study
  Country: US (occurrence: US)
  Receive Date: 20130821
  Receipt Date: 20130821
  Transmission Date: 20140515
  Serious: Yes (Hospitalization)
  Sender: FDA-Public Use
  Company Number: US-009507513-1308USA006988

PATIENT
  Age: 65 Year
  Sex: Female

DRUGS (9)
  1. TEMODAR [Suspect]
     Indication: GLIOBLASTOMA
     Dosage: 320 MG X 5 DAYS/28 DAYS (1-5 DAYS)
     Dates: start: 20130723, end: 20130727
  2. BEVACIZUMAB [Suspect]
     Indication: GLIOBLASTOMA
     Dosage: 600 MG,EVERY 2 WEEKS
     Route: 042
     Dates: start: 20130425, end: 20130725
  3. ONDANSETRON HYDROCHLORIDE [Concomitant]
  4. LORATADINE [Concomitant]
  5. METHYLPHENIDATE [Concomitant]
  6. OMEPRAZOLE [Concomitant]
  7. ESTRADIOL [Concomitant]
  8. NITROFURANTOIN [Concomitant]
  9. NORETHINDRONE [Concomitant]

REACTIONS (3)
  - Pneumonia [Unknown]
  - Urinary tract infection [Unknown]
  - Mental status changes [Unknown]
